FAERS Safety Report 19748462 (Version 1)
Quarter: 2021Q3

REPORT INFORMATION
  Report Type: Spontaneous
  Country: US (occurrence: US)
  Receive Date: 20210826
  Receipt Date: 20210826
  Transmission Date: 20211014
  Serious: No
  Sender: FDA-Public Use
  Company Number: US-ASTRAZENECA-2021A677305

PATIENT
  Age: 56 Year
  Sex: Female
  Weight: 83.9 kg

DRUGS (1)
  1. FASENRA [Suspect]
     Active Substance: BENRALIZUMAB
     Indication: RESPIRATORY DISORDER
     Dosage: 30 MG IN EVERY 4, 8, 12 WEEK AND EVERY 8 WEEKS THEREAFTER
     Route: 058
     Dates: start: 20210810

REACTIONS (4)
  - Device leakage [Unknown]
  - Hypoaesthesia [Not Recovered/Not Resolved]
  - Wrong technique in device usage process [Recovered/Resolved]
  - Incorrect dose administered by device [Not Recovered/Not Resolved]

NARRATIVE: CASE EVENT DATE: 20210810
